FAERS Safety Report 7686822-2 (Version None)
Quarter: 2011Q3

REPORT INFORMATION
  Report Type: 
  Country: None (occurrence: None)
  Receive Date: 20110816
  Receipt Date: 20110808
  Transmission Date: 20111222
  Serious: Yes (Death)
  Sender: FDA-Public Use
  Company Number: US-JNJFOC-20110804996

PATIENT
  Sex: Male

DRUGS (2)
  1. TYLENOL-500 [Suspect]
  2. TYLENOL-500 [Suspect]
     Indication: PRODUCT USED FOR UNKNOWN INDICATION
     Dates: start: 20090807

REACTIONS (2)
  - PRODUCT QUALITY ISSUE [None]
  - DEATH [None]
